FAERS Safety Report 5860511-9 (Version None)
Quarter: 2008Q3

REPORT INFORMATION
  Report Type: 
  Country: None (occurrence: None)
  Receive Date: 20080827
  Receipt Date: 20080122
  Transmission Date: 20090109
  Serious: No
  Sender: FDA-Public Use
  Company Number: US-ABBOTT-07P-163-0418700-00

PATIENT
  Sex: Male
  Weight: 78.088 kg

DRUGS (1)
  1. NIASPAN [Suspect]
     Indication: BLOOD CHOLESTEROL INCREASED
     Dosage: UN COATED
     Route: 048
     Dates: start: 20070926

REACTIONS (1)
  - HEADACHE [None]
